FAERS Safety Report 6851275-0 (Version None)
Quarter: 2010Q3

REPORT INFORMATION
  Report Type: 
  Country: None (occurrence: None)
  Receive Date: 20100717
  Receipt Date: 20080114
  Transmission Date: 20110219
  Serious: No
  Sender: FDA-Public Use
  Company Number: US-PFIZER INC-2008004871

PATIENT
  Sex: Female
  Weight: 58.2 kg

DRUGS (6)
  1. CHANTIX [Suspect]
     Indication: SMOKING CESSATION THERAPY
     Dates: start: 20070101
  2. SPIRIVA [Concomitant]
     Route: 055
  3. FLOVENT [Concomitant]
     Route: 055
  4. ALBUTEROL [Concomitant]
     Route: 055
  5. LISINOPRIL [Concomitant]
  6. LORAZEPAM [Concomitant]

REACTIONS (2)
  - FEELING ABNORMAL [None]
  - NAUSEA [None]
